FAERS Safety Report 10646886 (Version 2)
Quarter: 2014Q4

REPORT INFORMATION
  Report Type: Spontaneous
  Country: US (occurrence: None)
  Receive Date: 20141205
  Receipt Date: 20141205
  Transmission Date: 20150529
  Serious: No
  Sender: FDA-Public Use
  Company Number: 163-POMAL-13115290

PATIENT
  Age: 66 Year
  Sex: Female
  Weight: 61.2 kg

DRUGS (10)
  1. MAGNESIUM OXIDE (MAGNESIUM OXIDE) (UNKNOWN) [Concomitant]
  2. L-CARNITINE (LEVOCARNITINE) [Concomitant]
  3. KYPROLIS [Concomitant]
     Active Substance: CARFILZOMIB
  4. VITAMIN D(VITAMIN D NOS) (UNKNOWN) [Concomitant]
  5. CALCIUM CARBONATE (CALCIUM CARBONATE) (UNKNOWN) (CALCIUM CARBONATE) [Concomitant]
     Active Substance: CALCIUM CARBONATE
  6. FOLIC ACID (FOLIC ACID) (UNKNOWN) [Concomitant]
  7. POMALYST [Suspect]
     Active Substance: POMALIDOMIDE
     Indication: PLASMA CELL MYELOMA
     Dosage: 4 MG, 21 IN 21 D, PO
     Route: 048
     Dates: start: 20131030
  8. DEXAMETHASONE (DEXAMETHASONE) (UNKNOWN) [Concomitant]
     Active Substance: DEXAMETHASONE
  9. ECOTRIN (ACETYLSALICYLIC ACID) (UNKNOWN) [Concomitant]
  10. MULTIVITAMINS (ERGOCALCIFEROL, ASCORBIC ACID, FOLIC ACID, THIAMINE HYDROCHLORIDE, RETINOL, RIBOFLAVIN, NICOTINAMIDE, PANTHENOL) (UNKNOWN) [Concomitant]

REACTIONS (3)
  - Oral candidiasis [None]
  - Back pain [None]
  - Musculoskeletal chest pain [None]
